APPROVED DRUG PRODUCT: CETIRIZINE HYDROCHLORIDE HIVES
Active Ingredient: CETIRIZINE HYDROCHLORIDE
Strength: 10MG
Dosage Form/Route: TABLET;ORAL
Application: A077829 | Product #002
Applicant: UNIQUE PHARMACEUTICAL LABORATORIES A DIV OF JB CHEMICALS AND PHARMACEUTICALS LTD
Approved: Aug 26, 2009 | RLD: No | RS: Yes | Type: OTC